FAERS Safety Report 7953013-7 (Version None)
Quarter: 2011Q4

REPORT INFORMATION
  Report Type: 
  Country: None (occurrence: None)
  Receive Date: 20111201
  Receipt Date: 20111124
  Transmission Date: 20120403
  Serious: Yes (Other)
  Sender: FDA-Public Use
  Company Number: CZ-PFIZER INC-2011288002

PATIENT
  Age: 37 Year
  Sex: Male

DRUGS (4)
  1. OMEPRAZOLE [Concomitant]
     Dosage: 20 MG, 1X/DAY
  2. BISTON [Concomitant]
     Dosage: 1.5 DF, 3X/DAY
     Route: 048
  3. MEDROL [Suspect]
     Indication: RHEUMATOID ARTHRITIS
     Dosage: 2 MG, 1X/DAY (4 MG 1/2 TABLET DAILY)
     Route: 048
  4. DICLOFENAC DUO ^PHARMAVIT^ [Concomitant]
     Dosage: 75 MG, 2X/DAY

REACTIONS (3)
  - IMMUNOSUPPRESSION [None]
  - BRONCHITIS [None]
  - BRONCHOPNEUMONIA [None]
